FAERS Safety Report 7853810-2 (Version None)
Quarter: 2011Q4

REPORT INFORMATION
  Report Type: 
  Country: None (occurrence: None)
  Receive Date: 20111026
  Receipt Date: 20111024
  Transmission Date: 20120403
  Serious: Yes (Other)
  Sender: FDA-Public Use
  Company Number: JP-PFIZER INC-2011245365

PATIENT
  Age: 73 Year
  Sex: Female

DRUGS (2)
  1. ZOLOFT [Suspect]
     Dosage: 25 MG DAILY
     Route: 048
     Dates: start: 20110801, end: 20110101
  2. ZOLOFT [Suspect]
     Indication: DEPRESSIVE SYMPTOM
     Dosage: 37.5 MG DAILY
     Route: 048
     Dates: start: 20101101, end: 20110801

REACTIONS (1)
  - DELIRIUM [None]
